FAERS Safety Report 5677375-9 (Version None)
Quarter: 2008Q1

REPORT INFORMATION
  Report Type: 
  Country: None (occurrence: None)
  Receive Date: 20080324
  Receipt Date: 20080320
  Transmission Date: 20080703
  Serious: Yes (Life-Threatening, Hospitalization)
  Sender: FDA-Public Use
  Company Number: BR-ASTRAZENECA-2008UW05360

PATIENT
  Age: 44 Year
  Sex: Female
  Weight: 86 kg

DRUGS (7)
  1. SYMBICORT [Suspect]
     Indication: BRONCHITIS
     Dosage: 320/9 BID
     Route: 055
     Dates: start: 20080101
  2. ASPIRIN [Concomitant]
     Indication: HYPERTHYROIDISM
     Route: 048
     Dates: start: 20020101
  3. PROPRANOLOL [Concomitant]
     Indication: TACHYARRHYTHMIA
     Route: 048
     Dates: start: 20080222
  4. FLUOXETINE [Concomitant]
     Indication: ANXIETY
     Route: 048
     Dates: start: 20070101
  5. FLUOXETINE [Concomitant]
     Indication: DEPRESSION
     Route: 048
     Dates: start: 20070101
  6. DIAZEPAM [Concomitant]
     Indication: ANXIETY
     Route: 048
     Dates: start: 20070101
  7. DIAZEPAM [Concomitant]
     Indication: DEPRESSION
     Route: 048
     Dates: start: 20070101

REACTIONS (3)
  - BRONCHOPNEUMONIA [None]
  - PNEUMONIA [None]
  - SINUSITIS [None]
